FAERS Safety Report 4364590-X (Version None)
Quarter: 2004Q2

REPORT INFORMATION
  Report Type: 
  Country: None (occurrence: None)
  Receive Date: 20040525
  Receipt Date: 20040510
  Transmission Date: 20050107
  Serious: Yes (Hospitalization)
  Sender: FDA-Public Use
  Company Number: STA-AE-04-MTX-190

PATIENT
  Age: 59 Year
  Sex: Male

DRUGS (11)
  1. METHOTREXATE [Suspect]
     Indication: RHEUMATOID ARTHRITIS
     Dosage: 20 MG 1X PER 1 WK, ORAL
     Route: 048
     Dates: start: 20020108, end: 20040318
  2. HUMIRA [Suspect]
     Indication: RHEUMATOID ARTHRITIS
     Dosage: 40 MG 1X PER 1 WK, SC
     Route: 058
     Dates: start: 20030602, end: 20040318
  3. EFFEXOR [Concomitant]
  4. LIPITOR [Concomitant]
  5. DESYREL [Concomitant]
  6. PREVACID [Concomitant]
  7. FLOMAX [Concomitant]
  8. METFORMIN HCL [Concomitant]
  9. ATENOLOL [Concomitant]
  10. DYAZIDE [Concomitant]
  11. VIOXX [Concomitant]

REACTIONS (1)
  - PERITONEAL TUBERCULOSIS [None]
